FAERS Safety Report 19777093 (Version 1)
Quarter: 2021Q3

REPORT INFORMATION
  Report Type: Spontaneous
  Country: EG (occurrence: EG)
  Receive Date: 20210902
  Receipt Date: 20210902
  Transmission Date: 20211014
  Serious: Yes (Hospitalization, Other)
  Sender: FDA-Public Use
  Company Number: EG-NOVOPROD-841673

PATIENT
  Age: 708 Month
  Sex: Female
  Weight: 80 kg

DRUGS (8)
  1. CONCOR [Concomitant]
     Active Substance: BISOPROLOL FUMARATE
     Indication: HYPERTENSION
     Dosage: 1TAB MORNING ? STARTED 10 YEARS AGO
     Route: 048
  2. CIDOPHAGE [Concomitant]
     Indication: DIABETES MELLITUS
     Dosage: 1 TAB./DAY?STARTED LONG TIME AGO
     Route: 048
  3. NEUROVIT E [Concomitant]
     Indication: NEUROPATHY PERIPHERAL
     Dosage: 1 TAB./DAY
     Route: 048
  4. VASOPINE [Concomitant]
     Indication: HYPERTENSION
     Dosage: 1 TAB./NIGHT ? STARTED 4 OR 5 YEARS AGO.
     Route: 048
  5. CIDOPHAGE [Concomitant]
     Dosage: 1 TAB./DAY RESTART AFTER CATHETERIZATION
     Route: 048
  6. MIXTARD 30 [Suspect]
     Active Substance: INSULIN HUMAN
     Indication: DIABETES MELLITUS
     Dosage: 50 IU, QD (35 IU/MORN. + 15 IU/NIGHT)
     Route: 058
  7. DEPOVIT B12 [Concomitant]
     Indication: NEUROPATHY PERIPHERAL
     Dosage: 1 AMP./WEEK ?STARTED 15 YEARS AGO
     Route: 030
  8. ATOR [Concomitant]
     Active Substance: ATORVASTATIN CALCIUM
     Indication: HYPERLIPIDAEMIA
     Dosage: 1 TAB./DAY
     Route: 048
     Dates: start: 2017

REACTIONS (1)
  - Coronary artery stenosis [Recovered/Resolved]

NARRATIVE: CASE EVENT DATE: 2017
